FAERS Safety Report 7362557-0 (Version None)
Quarter: 2011Q1

REPORT INFORMATION
  Report Type: 
  Country: None (occurrence: None)
  Receive Date: 20110319
  Receipt Date: 20110222
  Transmission Date: 20110831
  Serious: No
  Sender: FDA-Public Use
  Company Number: US-B.I. PHARMACEUTICALS,INC./RIDGEFIELD-2011-BP-06589BP

PATIENT
  Age: 66 Year
  Sex: Male

DRUGS (2)
  1. FLOMAX [Suspect]
     Dosage: 0.4 MG
     Route: 048
     Dates: start: 20110220
  2. FLOMAX [Suspect]
     Indication: PROSTATOMEGALY
     Dosage: 0.4 MG
     Route: 048
     Dates: start: 20100101, end: 20100101

REACTIONS (5)
  - COUGH [None]
  - DIZZINESS [None]
  - NIGHTMARE [None]
  - VISION BLURRED [None]
  - BACK PAIN [None]
